FAERS Safety Report 9667181 (Version 1)
Quarter: 2013Q4

REPORT INFORMATION
  Report Type: Spontaneous
  Country: US (occurrence: US)
  Receive Date: 20131104
  Receipt Date: 20131104
  Transmission Date: 20140711
  Serious: No
  Sender: FDA-Public Use
  Company Number: US-BIOGENIDEC-2013BI090344

PATIENT
  Sex: Male
  Weight: 79 kg

DRUGS (11)
  1. TECFIDERA [Suspect]
     Indication: PRODUCT USED FOR UNKNOWN INDICATION
     Route: 048
     Dates: start: 201304, end: 201306
  2. TECFIDERA [Suspect]
     Indication: PRODUCT USED FOR UNKNOWN INDICATION
     Route: 048
     Dates: start: 201304, end: 201306
  3. PROTONIX [Concomitant]
  4. LIPITOR [Concomitant]
  5. REGLAN [Concomitant]
  6. AMITRIPTYLIN [Concomitant]
  7. ZANAFLEX [Concomitant]
  8. FISH OIL [Concomitant]
  9. PROVIGIL [Concomitant]
  10. NAMENDA [Concomitant]
  11. RAPAFLO [Concomitant]

REACTIONS (8)
  - Multiple sclerosis [Unknown]
  - Hypoaesthesia [Unknown]
  - Paraesthesia [Unknown]
  - Cognitive disorder [Unknown]
  - Memory impairment [Unknown]
  - Urinary tract infection [Unknown]
  - Urinary retention [Unknown]
  - Drug intolerance [Unknown]
